FAERS Safety Report 13004422 (Version 1)
Quarter: 2016Q4

REPORT INFORMATION
  Report Type: Spontaneous
  Country: GB (occurrence: GB)
  Receive Date: 20161207
  Receipt Date: 20161207
  Transmission Date: 20170207
  Serious: Yes (Life-Threatening, Hospitalization)
  Sender: FDA-Public Use
  Company Number: GB-BAXTER-2016BAX060634

PATIENT
  Age: 77 Year
  Sex: Female

DRUGS (4)
  1. CYCLOPHOSPHAMIDE TABLETS 50 MG [Suspect]
     Active Substance: CYCLOPHOSPHAMIDE
     Indication: PRODUCT USED FOR UNKNOWN INDICATION
     Route: 048
  2. THALIDOMIDE [Suspect]
     Active Substance: THALIDOMIDE
     Indication: PRODUCT USED FOR UNKNOWN INDICATION
     Route: 048
  3. CYCLOPHOSPHAMIDE TABLETS 50 MG [Suspect]
     Active Substance: CYCLOPHOSPHAMIDE
     Dosage: DISCHARGED FROM HOSPITAL WITH COURSE FOR ONLY 2 WEEKS
     Route: 048
  4. THALIDOMIDE [Suspect]
     Active Substance: THALIDOMIDE
     Dosage: DISCHARGED FROM HOSPITAL WITH COURSE FOR ONLY 2 WEEKS
     Route: 048

REACTIONS (3)
  - Dehydration [Recovered/Resolved]
  - Drug dispensing error [Unknown]
  - Vomiting [Recovered/Resolved]
